FAERS Safety Report 24966879 (Version 2)
Quarter: 2025Q1

REPORT INFORMATION
  Report Type: Spontaneous
  Country: CA (occurrence: CA)
  Receive Date: 20250213
  Receipt Date: 20250327
  Transmission Date: 20250409
  Serious: Yes (Hospitalization, Other)
  Sender: SANOFI AVENTIS
  Company Number: CA-SA-2025SA042658

PATIENT
  Age: 10 Year
  Sex: Male
  Weight: 38 kg

DRUGS (2)
  1. ADMELOG [Suspect]
     Active Substance: INSULIN LISPRO
     Indication: Type 1 diabetes mellitus
     Dosage: 5.5 U AT BREAKFAST, 8 UNITS AT LUNCH AND 8 U AT SUPPER, TID
     Route: 058
  2. TRESIBA [Concomitant]
     Active Substance: INSULIN DEGLUDEC
     Dosage: 13 IU, QD

REACTIONS (1)
  - Generalised tonic-clonic seizure [Recovered/Resolved]
